FAERS Safety Report 5044422-7 (Version None)
Quarter: 2006Q3

REPORT INFORMATION
  Report Type: 
  Country: None (occurrence: None)
  Receive Date: 20060706
  Receipt Date: 20060615
  Transmission Date: 20061208
  Serious: Yes (Hospitalization)
  Sender: FDA-Public Use
  Company Number: US-AVENTIS-200615292US

PATIENT
  Sex: Male
  Weight: 109 kg

DRUGS (3)
  1. LANTUS [Suspect]
     Indication: DIABETES MELLITUS NON-INSULIN-DEPENDENT
     Dosage: DOSE: UNK
     Dates: start: 20050101
  2. OPTICLIK (INSULIN INJECTION PEN) [Suspect]
     Indication: DIABETES MELLITUS NON-INSULIN-DEPENDENT
     Dates: start: 20050101
  3. METFORMIN [Concomitant]
     Dosage: DOSE: UNK

REACTIONS (4)
  - CEREBROVASCULAR ACCIDENT [None]
  - HYPOAESTHESIA [None]
  - PHARMACEUTICAL PRODUCT COMPLAINT [None]
  - POOR QUALITY DRUG ADMINISTERED [None]
